FAERS Safety Report 6367757-4 (Version None)
Quarter: 2009Q3

REPORT INFORMATION
  Report Type: 
  Country: None (occurrence: None)
  Receive Date: 20090921
  Receipt Date: 20090909
  Transmission Date: 20100115
  Serious: Yes (Other)
  Sender: FDA-Public Use
  Company Number: US-ELI_LILLY_AND_COMPANY-US200909002398

PATIENT
  Sex: Female

DRUGS (3)
  1. CYMBALTA [Suspect]
     Indication: MAJOR DEPRESSION
     Dosage: 120 MG, UNK
     Dates: start: 20090501, end: 20090101
  2. CYMBALTA [Suspect]
     Dosage: 1 D/F, UNK
     Dates: start: 20090101
  3. OTHER ANALGESICS AND ANTIPYRETICS [Concomitant]
     Indication: PAIN

REACTIONS (1)
  - LOSS OF CONSCIOUSNESS [None]
